FAERS Safety Report 10222965 (Version 1)
Quarter: 2014Q2

REPORT INFORMATION
  Report Type: Spontaneous
  Country: IL (occurrence: IL)
  Receive Date: 20140607
  Receipt Date: 20140607
  Transmission Date: 20141212
  Serious: Yes (Hospitalization)
  Sender: FDA-Public Use
  Company Number: PHHY2014IL067622

PATIENT
  Age: 52 Year
  Sex: Male

DRUGS (6)
  1. METHYLPREDNISOLONE [Suspect]
     Indication: ENDOCRINE OPHTHALMOPATHY
     Dosage: 500 MG, PER WEEK
  2. METHYLPREDNISOLONE [Suspect]
     Dosage: 250 MG, PER WEEK
  3. METHYLPREDNISOLONE [Suspect]
     Dosage: 250 MG, PER WEEK
     Route: 042
  4. ATORVASTATIN [Concomitant]
     Indication: HYPERLIPIDAEMIA
  5. CIPROFIBRATE [Concomitant]
     Indication: HYPERLIPIDAEMIA
  6. LEVOTHYROXIN [Concomitant]
     Indication: HYPOTHYROIDISM

REACTIONS (5)
  - Drug-induced liver injury [Unknown]
  - Asthenia [Unknown]
  - Arthralgia [Unknown]
  - Hepatic enzyme increased [Recovered/Resolved]
  - Jaundice [Unknown]
